FAERS Safety Report 19238214 (Version 1)
Quarter: 2021Q2

REPORT INFORMATION
  Report Type: Spontaneous
  Country: US (occurrence: US)
  Receive Date: 20210510
  Receipt Date: 20210510
  Transmission Date: 20210717
  Serious: No
  Sender: FDA-Public Use
  Company Number: US-GLENMARK PHARMACEUTICALS-2021GMK052417

PATIENT

DRUGS (1)
  1. CLOBETASOL DIPROPIONATE [Suspect]
     Active Substance: CLOBETASOL PROPIONATE
     Indication: PSORIASIS
     Dosage: UNK
     Route: 061

REACTIONS (2)
  - Product closure issue [Unknown]
  - Therapeutic product effect decreased [Unknown]
